FAERS Safety Report 4377057-X (Version None)
Quarter: 2004Q2

REPORT INFORMATION
  Report Type: 
  Country: None (occurrence: None)
  Receive Date: 20040608
  Receipt Date: 20040526
  Transmission Date: 20050107
  Serious: Yes (Death)
  Sender: FDA-Public Use
  Company Number: 2004035707

PATIENT
  Age: 87 Year
  Sex: Male

DRUGS (2)
  1. UNASYN [Suspect]
     Indication: CULTURE URINE POSITIVE
     Dosage: 6 GRAM (1 D), INTRAVENOUS
     Route: 042
     Dates: start: 20031105, end: 20031108
  2. UNASYN [Suspect]
     Indication: PNEUMONIA
     Dosage: 6 GRAM (1 D), INTRAVENOUS
     Route: 042
     Dates: start: 20031105, end: 20031108

REACTIONS (2)
  - CONDITION AGGRAVATED [None]
  - PNEUMONIA [None]
